FAERS Safety Report 25870391 (Version 1)
Quarter: 2025Q4

REPORT INFORMATION
  Report Type: Spontaneous
  Country: US (occurrence: US)
  Receive Date: 20251001
  Receipt Date: 20251001
  Transmission Date: 20260118
  Serious: No
  Sender: INSUD PHARMA
  Company Number: US-INSUD PHARMA-2509US07762

PATIENT

DRUGS (2)
  1. SLYND [Suspect]
     Active Substance: DROSPIRENONE
     Indication: Heavy menstrual bleeding
     Dosage: UNKNOWN
     Route: 048
     Dates: start: 20250904
  2. SLYND [Suspect]
     Active Substance: DROSPIRENONE
     Indication: Polycystic ovarian syndrome

REACTIONS (5)
  - Dizziness [Not Recovered/Not Resolved]
  - Asthenia [Not Recovered/Not Resolved]
  - Somnolence [Recovered/Resolved]
  - Malaise [Not Recovered/Not Resolved]
  - Product prescribing issue [Unknown]

NARRATIVE: CASE EVENT DATE: 20250901
